FAERS Safety Report 8205429-1 (Version None)
Quarter: 2012Q1

REPORT INFORMATION
  Report Type: 
  Country: None (occurrence: None)
  Receive Date: 20120313
  Receipt Date: 20120228
  Transmission Date: 20120608
  Serious: No
  Sender: FDA-Public Use
  Company Number: US-B.I. PHARMACEUTICALS,INC./RIDGEFIELD-2010-BP-00611BP

PATIENT
  Sex: Male

DRUGS (5)
  1. PRILOSEC [Suspect]
     Indication: REFLUX GASTRITIS
  2. PRILOSEC [Suspect]
     Indication: OESOPHAGEAL ULCER
     Route: 048
     Dates: start: 20120101
  3. ZANTAC 150 [Suspect]
     Indication: OESOPHAGEAL ULCER
  4. ZANTAC 150 [Suspect]
     Indication: GASTROOESOPHAGEAL REFLUX DISEASE
     Dosage: 150 MG
     Route: 048
     Dates: start: 20090101
  5. ZANTAC 150 [Suspect]
     Indication: REFLUX GASTRITIS

REACTIONS (2)
  - INCORRECT DRUG ADMINISTRATION DURATION [None]
  - DIARRHOEA [None]
